FAERS Safety Report 7298958-9 (Version None)
Quarter: 2011Q1

REPORT INFORMATION
  Report Type: 
  Country: None (occurrence: None)
  Receive Date: 20110209
  Receipt Date: 20110126
  Transmission Date: 20110831
  Serious: Yes (Other)
  Sender: FDA-Public Use
  Company Number: OMPQ-NO-1102S-0190

PATIENT
  Age: 62 Year
  Sex: Female

DRUGS (1)
  1. OMNIPAQUE 70 [Suspect]
     Indication: PRODUCT USED FOR UNKNOWN INDICATION
     Dosage: 140 ML, SINGLE DOSE, I.V.
     Route: 042
     Dates: start: 20110124, end: 20110124

REACTIONS (4)
  - ILL-DEFINED DISORDER [None]
  - HYPERTENSIVE CRISIS [None]
  - PALPITATIONS [None]
  - PARAESTHESIA [None]
